FAERS Safety Report 8405335-3 (Version None)
Quarter: 2012Q2

REPORT INFORMATION
  Report Type: 
  Country: None (occurrence: None)
  Receive Date: 20120604
  Receipt Date: 20120529
  Transmission Date: 20120825
  Serious: Yes (Hospitalization)
  Sender: FDA-Public Use
  Company Number: US-AMGEN-USASP2012033811

PATIENT
  Age: 40 Year
  Sex: Male

DRUGS (1)
  1. ENBREL [Suspect]
     Indication: PSORIATIC ARTHROPATHY
     Dosage: 50 MG, 2 TIMES/WK
     Dates: start: 20030101, end: 20120510

REACTIONS (6)
  - HERPES ZOSTER [None]
  - EAR PAIN [None]
  - OROPHARYNGEAL PAIN [None]
  - MASS [None]
  - HEADACHE [None]
  - IMPAIRED HEALING [None]
